FAERS Safety Report 24675659 (Version 2)
Quarter: 2024Q4

REPORT INFORMATION
  Report Type: Spontaneous
  Country: AT (occurrence: AT)
  Receive Date: 20241128
  Receipt Date: 20241128
  Transmission Date: 20250114
  Serious: Yes (Other)
  Sender: ALEXION PHARMACEUTICALS
  Company Number: AT-ASTRAZENECA-202410GLO008788AT

PATIENT
  Age: 25 Year

DRUGS (13)
  1. IMFINZI [Suspect]
     Active Substance: DURVALUMAB
     Indication: Hepatobiliary cancer
     Dosage: EVERY 21 DAYS, 5 CYCLES IN SUM
     Route: 065
  2. IMFINZI [Suspect]
     Active Substance: DURVALUMAB
     Dosage: EVERY 21 DAYS, 5 CYCLES IN SUM
  3. IMFINZI [Suspect]
     Active Substance: DURVALUMAB
     Dosage: EVERY 21 DAYS, 5 CYCLES IN SUM
     Route: 065
  4. IMFINZI [Suspect]
     Active Substance: DURVALUMAB
     Dosage: EVERY 21 DAYS, 5 CYCLES IN SUM
  5. CISPLATIN [Suspect]
     Active Substance: CISPLATIN
     Indication: Hepatobiliary cancer
     Dosage: ON DAYS 1 AND 8, 5 CYCLES IN SUM
     Route: 065
  6. CISPLATIN [Suspect]
     Active Substance: CISPLATIN
     Dosage: ON DAYS 1 AND 8, 5 CYCLES IN SUM
  7. CISPLATIN [Suspect]
     Active Substance: CISPLATIN
     Dosage: ON DAYS 1 AND 8, 5 CYCLES IN SUM
     Route: 065
  8. CISPLATIN [Suspect]
     Active Substance: CISPLATIN
     Dosage: ON DAYS 1 AND 8, 5 CYCLES IN SUM
  9. DENOSUMAB [Concomitant]
     Active Substance: DENOSUMAB
     Indication: Osteoporosis prophylaxis
     Dosage: UNK
     Route: 065
  10. DENOSUMAB [Concomitant]
     Active Substance: DENOSUMAB
     Dosage: UNK
  11. DENOSUMAB [Concomitant]
     Active Substance: DENOSUMAB
     Dosage: UNK
     Route: 065
  12. DENOSUMAB [Concomitant]
     Active Substance: DENOSUMAB
     Dosage: UNK
  13. GEMCITABINE [Suspect]
     Active Substance: GEMCITABINE

REACTIONS (5)
  - Acquired gene mutation [Unknown]
  - Drug resistance [Unknown]
  - Malignant neoplasm progression [Unknown]
  - Metastases to spine [Unknown]
  - Metastases to liver [Unknown]
